FAERS Safety Report 4950900-9 (Version None)
Quarter: 2006Q1

REPORT INFORMATION
  Report Type: 
  Country: None (occurrence: None)
  Receive Date: 20060322
  Receipt Date: 20051215
  Transmission Date: 20060701
  Serious: Yes (Congenital Anomaly)
  Sender: FDA-Public Use
  Company Number: ZA-AVENTIS-200521315GDDC

PATIENT
  Age: 0 Year
  Sex: Female
  Weight: 3.87 kg

DRUGS (11)
  1. LANTUS [Suspect]
     Indication: DIABETES MELLITUS
     Dates: start: 20050901, end: 20051205
  2. LANTUS [Suspect]
     Route: 058
     Dates: start: 20050901, end: 20051205
  3. HUMALOG [Concomitant]
     Indication: DIABETES MELLITUS
     Dosage: FREQUENCY: BEFORE MEALS
     Dates: start: 20000101, end: 20051205
  4. HUMULIN N [Concomitant]
     Dosage: DOSE UNIT: UNITS
     Route: 058
     Dates: start: 20000101, end: 20050901
  5. HUMULIN N [Concomitant]
     Dates: start: 20000101, end: 20050901
  6. RANFLOCS [Concomitant]
     Route: 064
  7. ADCO-AMOCLAV [Concomitant]
     Indication: UPPER RESPIRATORY TRACT INFECTION
     Dosage: DOSE: 1 X 2
     Route: 064
  8. ADCO-AMOCLAV [Concomitant]
     Dosage: DOSE: 1 X 3
     Route: 064
     Dates: start: 20051217, end: 20051222
  9. ADCO-AMOCLAV [Concomitant]
     Indication: SKIN INFECTION
     Dosage: DOSE: 1 X 2
     Route: 064
  10. ADCO-AMOCLAV [Concomitant]
     Indication: SOFT TISSUE INFECTION
     Dosage: DOSE: 1 X 2
     Route: 064
  11. ADCO-AMOCLAV [Concomitant]
     Dosage: DOSE: 1 X 3
     Route: 064
     Dates: start: 20051217, end: 20051222

REACTIONS (4)
  - CAESAREAN SECTION [None]
  - DOUBLE OUTLET RIGHT VENTRICLE [None]
  - DRUG EXPOSURE DURING PREGNANCY [None]
  - HYPOPLASTIC LEFT HEART SYNDROME [None]
